FAERS Safety Report 8597791-5 (Version None)
Quarter: 2012Q3

REPORT INFORMATION
  Report Type: 
  Country: None (occurrence: None)
  Receive Date: 20120816
  Receipt Date: 20120813
  Transmission Date: 20120928
  Serious: Yes (Other)
  Sender: FDA-Public Use
  Company Number: PHHY2012BR057388

PATIENT
  Sex: Female

DRUGS (2)
  1. EXELON [Suspect]
     Indication: CEREBRAL ISCHAEMIA
     Dosage: 4.6 MG, ONE ADHESIVE DAILY
     Route: 062
     Dates: start: 20120301
  2. CLOPIDOGREL BISULFATE [Concomitant]
     Dosage: 75 MG, UNK

REACTIONS (7)
  - FACE INJURY [None]
  - FEAR [None]
  - SOMNOLENCE [None]
  - FALL [None]
  - PAIN IN EXTREMITY [None]
  - ARTHRALGIA [None]
  - DISORIENTATION [None]
